FAERS Safety Report 8128227-6 (Version None)
Quarter: 2012Q1

REPORT INFORMATION
  Report Type: 
  Country: None (occurrence: None)
  Receive Date: 20120210
  Receipt Date: 20120201
  Transmission Date: 20120608
  Serious: Yes (Other)
  Sender: FDA-Public Use
  Company Number: US-ABBOTT-12P-163-0900064-00

PATIENT
  Sex: Female
  Weight: 81.72 kg

DRUGS (3)
  1. METHOTREXATE [Concomitant]
     Indication: SYSTEMIC LUPUS ERYTHEMATOSUS
  2. HUMIRA [Suspect]
     Indication: SYSTEMIC LUPUS ERYTHEMATOSUS
     Route: 058
     Dates: start: 20080101, end: 20111201
  3. HUMIRA [Suspect]
     Route: 058
     Dates: start: 20120101

REACTIONS (2)
  - OFF LABEL USE [None]
  - BACK PAIN [None]
